FAERS Safety Report 18099375 (Version 1)
Quarter: 2020Q3

REPORT INFORMATION
  Report Type: Report from Study
  Country: US (occurrence: US)
  Receive Date: 20200731
  Receipt Date: 20200731
  Transmission Date: 20201103
  Serious: Yes (Other)
  Sender: FDA-Public Use
  Company Number: US-BIOGEN-2020BI00903196

PATIENT
  Sex: Female

DRUGS (1)
  1. TECFIDERA [Suspect]
     Active Substance: DIMETHYL FUMARATE
     Indication: MULTIPLE SCLEROSIS
     Route: 065
     Dates: start: 20131205

REACTIONS (9)
  - Tremor [Unknown]
  - Systemic lupus erythematosus [Unknown]
  - Stress [Unknown]
  - Pain [Unknown]
  - Abdominal distension [Unknown]
  - Headache [Unknown]
  - Facial pain [Unknown]
  - Trigeminal neuralgia [Unknown]
  - Back pain [Unknown]
